FAERS Safety Report 6325145-0 (Version None)
Quarter: 2009Q3

REPORT INFORMATION
  Report Type: 
  Country: None (occurrence: None)
  Receive Date: 20090824
  Receipt Date: 20090701
  Transmission Date: 20100115
  Serious: No
  Sender: FDA-Public Use
  Company Number: US-ABBOTT-09P-163-0583548-00

PATIENT
  Weight: 63.56 kg

DRUGS (2)
  1. NIASPAN [Suspect]
     Indication: BLOOD CHOLESTEROL INCREASED
     Route: 048
     Dates: start: 20090301
  2. BENADRYL [Concomitant]
     Indication: SEASONAL ALLERGY

REACTIONS (3)
  - FLUSHING [None]
  - HYPERHIDROSIS [None]
  - PARAESTHESIA [None]
